FAERS Safety Report 6440406-2 (Version None)
Quarter: 2009Q4

REPORT INFORMATION
  Report Type: 
  Country: None (occurrence: None)
  Receive Date: 20091113
  Receipt Date: 20091111
  Transmission Date: 20100525
  Serious: Yes (Death)
  Sender: FDA-Public Use
  Company Number: PHHY2009BR49444

PATIENT

DRUGS (1)
  1. EXELON [Suspect]
     Dosage: 6MG

REACTIONS (1)
  - DEATH [None]
